FAERS Safety Report 23833078 (Version 2)
Quarter: 2024Q2

REPORT INFORMATION
  Report Type: Spontaneous
  Country: PK (occurrence: PK)
  Receive Date: 20240508
  Receipt Date: 20240521
  Transmission Date: 20240715
  Serious: Yes (Death, Hospitalization, Other)
  Sender: FDA-Public Use
  Company Number: PK-SA-SAC20240503000266

PATIENT

DRUGS (1)
  1. ALDURAZYME [Suspect]
     Active Substance: LARONIDASE
     Indication: Mucopolysaccharidosis I
     Dosage: UNK
     Route: 065

REACTIONS (20)
  - Respiratory failure [Fatal]
  - Cardio-respiratory arrest [Fatal]
  - Pulmonary hypertension [Fatal]
  - Pneumonia [Fatal]
  - Mucopolysaccharidosis I [Fatal]
  - Condition aggravated [Fatal]
  - Lung opacity [Unknown]
  - Lower respiratory tract infection [Unknown]
  - Pyrexia [Unknown]
  - Cough [Unknown]
  - Respiratory distress [Fatal]
  - Condition aggravated [Fatal]
  - Aortic stenosis [Unknown]
  - Pulmonary valve incompetence [Unknown]
  - Cardiomegaly [Unknown]
  - General physical health deterioration [Fatal]
  - Heart rate increased [Unknown]
  - Respiratory rate increased [Unknown]
  - Oxygen saturation decreased [Unknown]
  - Blood pressure decreased [Unknown]

NARRATIVE: CASE EVENT DATE: 20240301
